FAERS Safety Report 7271772-6 (Version None)
Quarter: 2011Q1

REPORT INFORMATION
  Report Type: 
  Country: None (occurrence: None)
  Receive Date: 20110203
  Receipt Date: 20110125
  Transmission Date: 20110831
  Serious: Yes (Other)
  Sender: FDA-Public Use
  Company Number: US-PFIZER INC-US-WYE-H14081310

PATIENT
  Sex: Female
  Weight: 62.6 kg

DRUGS (2)
  1. PROTONIX [Concomitant]
     Route: 065
  2. PREMPRO [Suspect]
     Indication: HORMONE REPLACEMENT THERAPY
     Dosage: UNK
     Route: 048
     Dates: start: 19950901, end: 20030101

REACTIONS (2)
  - BREAST CANCER [None]
  - BREAST TENDERNESS [None]
